FAERS Safety Report 12342147 (Version 1)
Quarter: 2016Q2

REPORT INFORMATION
  Report Type: Spontaneous
  Country: US (occurrence: US)
  Receive Date: 20160506
  Receipt Date: 20160506
  Transmission Date: 20160815
  Serious: No
  Sender: FDA-Public Use
  Company Number: US-ANACOR-2016ANA00050

PATIENT
  Age: 61 Year
  Sex: Female

DRUGS (5)
  1. KERYDIN [Suspect]
     Active Substance: TAVABOROLE
     Indication: ONYCHOMYCOSIS
     Dosage: UNK
     Route: 061
     Dates: start: 20160203
  2. SYNTHROID [Concomitant]
     Active Substance: LEVOTHYROXINE SODIUM
     Dosage: 0.5 MG, 1X/DAY
     Route: 048
     Dates: start: 1996
  3. DIOVAN [Concomitant]
     Active Substance: VALSARTAN
     Indication: BLOOD PRESSURE MEASUREMENT
     Dosage: 320 MG, 1X/DAY
     Route: 048
     Dates: start: 2009
  4. LIPITOR [Concomitant]
     Active Substance: ATORVASTATIN CALCIUM
     Indication: BLOOD CHOLESTEROL
     Dosage: 20 MG, 1X/DAY
     Route: 048
  5. PREMARIN [Concomitant]
     Active Substance: ESTROGENS, CONJUGATED
     Indication: HORMONE REPLACEMENT THERAPY
     Dosage: 0.9 MG, 1X/DAY
     Route: 048
     Dates: start: 1996

REACTIONS (1)
  - Chromaturia [Unknown]

NARRATIVE: CASE EVENT DATE: 20160208
